FAERS Safety Report 25998830 (Version 2)
Quarter: 2025Q4

REPORT INFORMATION
  Report Type: Spontaneous
  Country: US (occurrence: US)
  Receive Date: 20251105
  Receipt Date: 20251119
  Transmission Date: 20260117
  Serious: Yes (Hospitalization, Other)
  Sender: CATALYST PHARMA
  Company Number: US-CATALYST PHARMACEUTICALS, INC-US-CATA-25-01570

PATIENT
  Age: 75 Year
  Sex: Female
  Weight: 78.912 kg

DRUGS (25)
  1. FIRDAPSE [Suspect]
     Active Substance: AMIFAMPRIDINE PHOSPHATE
     Indication: Myasthenic syndrome
     Dosage: TITRATION: 5 MG, THREE TIMES A DAY FOR FOUR DAYS, THEN INCREASE TO 5 MG IN THE AM, 5 MG IN THE AFTER
     Route: 048
     Dates: start: 20250826, end: 2025
  2. FIRDAPSE [Suspect]
     Active Substance: AMIFAMPRIDINE PHOSPHATE
     Dosage: 30 MG DAILY IN DIVIDED DOSES
     Route: 048
     Dates: start: 20250909
  3. PROAIR HFA [Concomitant]
     Active Substance: ALBUTEROL SULFATE
     Indication: Chronic obstructive pulmonary disease
     Dosage: UNK, UNK
     Route: 055
  4. ANORO ELLIPTA [Concomitant]
     Active Substance: UMECLIDINIUM BROMIDE\VILANTEROL TRIFENATATE
     Indication: Chronic obstructive pulmonary disease
     Dosage: INHALE 1 PUFF IN THE MORNING
     Route: 055
     Dates: start: 20250708, end: 20260708
  5. ASPIRIN [Concomitant]
     Active Substance: ASPIRIN
     Indication: Thrombosis prophylaxis
     Dosage: TAKE 1 TABLET (325 MG TOTAL) DAILY
     Route: 048
     Dates: start: 20240628
  6. LIPITOR [Concomitant]
     Active Substance: ATORVASTATIN CALCIUM
     Indication: Dyslipidaemia
     Dosage: 40 MG / 1 TABLET AT BEDTIME
     Route: 048
     Dates: start: 20250728, end: 20250828
  7. CARDIZEM CD [Concomitant]
     Active Substance: DILTIAZEM HYDROCHLORIDE
     Indication: Atrial fibrillation
     Dosage: 1 CAPSULE (120 MG TOTAL) DAILY
     Route: 048
     Dates: start: 20250730, end: 20260730
  8. LASIX [Concomitant]
     Active Substance: FUROSEMIDE
     Indication: Oedema
     Dosage: 1 TABLET (20 MG TOTAL) DAILY. TAKE ADDITIONAL TABLET FOR WEIGHT GAIN }2 LB IN A DAY OR }5 LBS IN A W
     Route: 048
     Dates: start: 20250617, end: 20251001
  9. ATARAX [Concomitant]
     Active Substance: HYDROXYZINE HYDROCHLORIDE
     Indication: Anxiety
     Dosage: 1 TABLET (10 MG TOTAL) 3 (THREE) TIMES A DAY AS NEEDED FOR ANXIETY
     Route: 048
     Dates: start: 20250809, end: 20250902
  10. DUONEB [Concomitant]
     Active Substance: ALBUTEROL SULFATE\IPRATROPIUM BROMIDE
     Indication: Chronic obstructive pulmonary disease
     Dosage: 3 ML BY NEBULIZATION 2 (TWO) TIMES A DAY
     Route: 055
     Dates: start: 20250309, end: 20251009
  11. SYNTHROID [Concomitant]
     Active Substance: LEVOTHYROXINE SODIUM
     Indication: Hypothyroidism
     Dosage: 1 TABLET (125 MCG TOTAL) IN THE MORNING
     Route: 048
     Dates: start: 20240803, end: 20250916
  12. CLARITIN [Concomitant]
     Active Substance: LORATADINE
     Indication: Hypersensitivity
     Dosage: 10 MG
     Route: 065
  13. MAGNESIUM OXIDE [Concomitant]
     Active Substance: MAGNESIUM OXIDE
     Indication: Supplementation therapy
     Dosage: ONE TABLET (400 MG TOTAL) 3 (THREE) TIMES A WEEK
     Route: 048
     Dates: start: 20250627, end: 20251012
  14. LOPRESSOR [Concomitant]
     Active Substance: METOPROLOL TARTRATE
     Indication: Hypertension
     Dosage: ONE TABLET (100 MG TOTAL) 2 (TWO) TIMES A DAY
     Route: 048
     Dates: start: 20250106, end: 20260428
  15. DELTASONE [Concomitant]
     Active Substance: PREDNISONE
     Indication: Arthritis
     Dosage: ONE TABLET (5 MG TOTAL) DAILY
     Route: 048
     Dates: start: 20241211
  16. DELTASONE [Concomitant]
     Active Substance: PREDNISONE
     Dosage: ONE TABLET (1 MG TOTAL) DAILY IN ADDITION TO 5 MG TABLET FOR A TOTAL DAILY DOSE OF 6 MG
     Route: 048
     Dates: start: 20250514, end: 20250902
  17. EFFEXOR XR [Concomitant]
     Active Substance: VENLAFAXINE HYDROCHLORIDE
     Indication: Depression
     Dosage: 1 TABLET (75 MG) TWICE DAILY
     Route: 065
     Dates: start: 20250514
  18. LORATADINE [Concomitant]
     Active Substance: LORATADINE
     Indication: Hypersensitivity
     Dosage: 10 MG
     Route: 065
  19. REFRESH TEARS [Concomitant]
     Active Substance: CARBOXYMETHYLCELLULOSE SODIUM
     Indication: Dry eye
     Dosage: 0.25%
     Route: 031
  20. REFRESH TEARS [Concomitant]
     Active Substance: CARBOXYMETHYLCELLULOSE SODIUM
     Dosage: 1 DROP INTO BOTH EYES 3 (THREE) TIMES A DAY AS NEEDED
     Route: 031
  21. ALBUTEROL SULFATE [Concomitant]
     Active Substance: ALBUTEROL SULFATE
     Indication: Chronic obstructive pulmonary disease
     Dosage: 2 PUFFS EVERY MORNING AND 2 PUFFS EVERY 6 HOURS AS NEEDED
     Route: 055
     Dates: start: 20250705, end: 20251007
  22. ALBUTEROL SULFATE [Concomitant]
     Active Substance: ALBUTEROL SULFATE
     Indication: Asthma
  23. LACTOBACILLUS COMBINATION NO. 4 [Concomitant]
     Indication: Product used for unknown indication
     Dosage: 3 BILLION CELL CAPSULE, 1 CAPSULE DAILY
     Route: 048
     Dates: start: 20250702, end: 20251007
  24. OXYGEN [Concomitant]
     Active Substance: OXYGEN
     Indication: Dyspnoea
     Dosage: INHALE 1 L/MIN DAILY AS NEEDED, VIA NASAL CANNULA
     Route: 055
  25. POTASSIUM CHLORIDE [Concomitant]
     Active Substance: POTASSIUM CHLORIDE
     Indication: Product used for unknown indication
     Dosage: ONE TABLET (20 MEQ TOTAL) DAILY
     Route: 048
     Dates: start: 20250604

REACTIONS (2)
  - Cardiac failure congestive [Unknown]
  - Dyspepsia [Recovered/Resolved]

NARRATIVE: CASE EVENT DATE: 20250801
